FAERS Safety Report 23177459 (Version 2)
Quarter: 2023Q4

REPORT INFORMATION
  Report Type: Spontaneous
  Country: US (occurrence: US)
  Receive Date: 20231113
  Receipt Date: 20231221
  Transmission Date: 20240110
  Serious: No
  Sender: FDA-Public Use
  Company Number: US-BIOVITRUM-2023-US-017877

PATIENT
  Age: 4 Month
  Sex: Female
  Weight: 4.71 kg

DRUGS (5)
  1. SYNAGIS [Suspect]
     Active Substance: PALIVIZUMAB
     Indication: Premature baby
     Dosage: 15 MG/KG ONCE A MONTH (100 MG SDV/INJ PF 1ML 1S)
     Route: 030
     Dates: start: 20231107
  2. SYNAGIS [Suspect]
     Active Substance: PALIVIZUMAB
     Indication: Bronchopulmonary dysplasia
  3. PREVACID [Concomitant]
     Active Substance: LANSOPRAZOLE
     Indication: Product used for unknown indication
     Dosage: 15 MG TABLET RAP DR
  4. INFANT VITAMIN D [Concomitant]
     Indication: Product used for unknown indication
     Dosage: VITAMIN D (400)/ML DROPS
  5. INFANT-TODDLER MULTIVIT-IRON [Concomitant]
     Indication: Product used for unknown indication

REACTIONS (2)
  - Crying [Unknown]
  - Influenza [Unknown]

NARRATIVE: CASE EVENT DATE: 20231107
